FAERS Safety Report 17820830 (Version 1)
Quarter: 2020Q2

REPORT INFORMATION
  Report Type: Spontaneous
  Country: US (occurrence: US)
  Receive Date: 20200525
  Receipt Date: 20200525
  Transmission Date: 20200714
  Serious: No
  Sender: FDA-Public Use
  Company Number: US-LUPIN PHARMACEUTICALS INC.-2020-00712

PATIENT
  Age: 50 Year
  Sex: Female
  Weight: 70 kg

DRUGS (3)
  1. DOXYCYCLINE HYCLATE TABLETS USP, 75 MG [Suspect]
     Active Substance: DOXYCYCLINE HYCLATE
     Indication: ROSACEA
     Dosage: 75 MILLIGRAM, BID
     Route: 048
     Dates: start: 201908
  2. DOXYCYCLINE HYCLATE TABLETS USP, 75 MG [Suspect]
     Active Substance: DOXYCYCLINE HYCLATE
     Indication: SKIN IRRITATION
     Dosage: 75 MILLIGRAM, BID
     Route: 048
     Dates: start: 201908
  3. LOSARTAN. [Concomitant]
     Active Substance: LOSARTAN
     Indication: HYPERTENSION
     Dosage: 25 MILLIGRAM, QD
     Route: 048

REACTIONS (1)
  - Tooth discolouration [Not Recovered/Not Resolved]

NARRATIVE: CASE EVENT DATE: 201910
